FAERS Safety Report 9410775 (Version 1)
Quarter: 2013Q3

REPORT INFORMATION
  Report Type: Spontaneous
  Country: DE (occurrence: DE)
  Receive Date: 20130719
  Receipt Date: 20130719
  Transmission Date: 20140515
  Serious: Yes (Other)
  Sender: FDA-Public Use
  Company Number: DE-B.I. PHARMACEUTICALS,INC./RIDGEFIELD-2013-DE-01842DE

PATIENT
  Sex: Male
  Weight: 74 kg

DRUGS (3)
  1. PRADAXA [Suspect]
     Indication: ATRIAL FIBRILLATION
     Dosage: 220 MG
     Route: 048
     Dates: start: 2011
  2. RAMIPRIL [Concomitant]
  3. DIGITOXIN [Concomitant]

REACTIONS (1)
  - Cardiac output decreased [Not Recovered/Not Resolved]
